FAERS Safety Report 4337029-8 (Version None)
Quarter: 2004Q1

REPORT INFORMATION
  Report Type: 
  Country: None (occurrence: None)
  Receive Date: 20040329
  Receipt Date: 20040115
  Transmission Date: 20041129
  Serious: No
  Sender: FDA-Public Use
  Company Number: USA040156783

PATIENT
  Age: 6 Year
  Sex: Female

DRUGS (3)
  1. STRATTERA [Suspect]
     Indication: ATTENTION DEFICIT/HYPERACTIVITY DISORDER
     Dosage: 43 MG/DAY
     Dates: start: 20031201
  2. QVAR (BECLOMETASONE DIPROPIONATE) [Concomitant]
  3. ALBUTEROL [Concomitant]

REACTIONS (5)
  - EARLY MORNING AWAKENING [None]
  - INCREASED APPETITE [None]
  - MOOD SWINGS [None]
  - PHARYNGEAL ERYTHEMA [None]
  - PHARYNGOLARYNGEAL PAIN [None]
